FAERS Safety Report 7241322-9 (Version None)
Quarter: 2011Q1

REPORT INFORMATION
  Report Type: 
  Country: None (occurrence: None)
  Receive Date: 20110119
  Receipt Date: 20110119
  Transmission Date: 20110831
  Serious: No
  Sender: FDA-Public Use
  Company Number: None

PATIENT
  Age: 53 Year
  Sex: Female

DRUGS (1)
  1. OCTREOTIDE ACETATE [Suspect]
     Indication: PANCREATIC CARCINOMA
     Dosage: 150 MCG (0.75 ML) TID SQ
     Dates: start: 20101230, end: 20110102

REACTIONS (2)
  - INJECTION SITE DISCOLOURATION [None]
  - INJECTION SITE PAIN [None]
